FAERS Safety Report 7334618-3 (Version None)
Quarter: 2011Q1

REPORT INFORMATION
  Report Type: 
  Country: None (occurrence: None)
  Receive Date: 20110307
  Receipt Date: 20110222
  Transmission Date: 20110831
  Serious: Yes (Hospitalization, Other)
  Sender: FDA-Public Use
  Company Number: US-ELI_LILLY_AND_COMPANY-US201102006363

PATIENT
  Age: 61 Year
  Sex: Female

DRUGS (13)
  1. RENAGEL [Concomitant]
  2. ADVAIR DISKUS 100/50 [Concomitant]
  3. IMDUR [Concomitant]
  4. CARDIZEM [Concomitant]
  5. ZOCOR [Concomitant]
  6. PERCOCET [Concomitant]
  7. DUONEB [Concomitant]
  8. HEPARIN [Concomitant]
  9. CYMBALTA [Suspect]
     Indication: DEPRESSION
     Dosage: 30 MG, UNK
  10. PROTONIX [Concomitant]
  11. SENEXON [Concomitant]
  12. SOLU-MEDROL [Concomitant]
  13. HYDRALAZINE                        /00007602/ [Concomitant]

REACTIONS (2)
  - SEPSIS [None]
  - CREATININE RENAL CLEARANCE DECREASED [None]
